FAERS Safety Report 8807932 (Version 2)
Quarter: 2015Q1

REPORT INFORMATION
  Report Type: Report from Study
  Country: US (occurrence: US)
  Receive Date: 20120925
  Receipt Date: 20150322
  Transmission Date: 20150721
  Serious: Yes (Other)
  Sender: FDA-Public Use
  Company Number: US-ROCHE-1104253

PATIENT
  Sex: Female
  Weight: 64 kg

DRUGS (14)
  1. AVASTIN [Suspect]
     Active Substance: BEVACIZUMAB
     Indication: OESOPHAGEAL CARCINOMA
     Route: 042
  2. ALOXI [Concomitant]
     Active Substance: PALONOSETRON HYDROCHLORIDE
  3. TAXOL [Concomitant]
     Active Substance: PACLITAXEL
  4. ARANESP [Concomitant]
     Active Substance: DARBEPOETIN ALFA
     Route: 065
  5. CARBOPLATIN. [Concomitant]
     Active Substance: CARBOPLATIN
  6. ZOMETA [Concomitant]
     Active Substance: ZOLEDRONIC ACID
  7. VICODIN [Concomitant]
     Active Substance: ACETAMINOPHEN\HYDROCODONE BITARTRATE
  8. LEUCOVORIN [Concomitant]
     Active Substance: LEUCOVORIN
     Route: 065
  9. 5-FU [Concomitant]
     Active Substance: FLUOROURACIL
     Route: 065
  10. TYLENOL [Concomitant]
     Active Substance: ACETAMINOPHEN
  11. NEXIUM [Concomitant]
     Active Substance: ESOMEPRAZOLE MAGNESIUM
  12. LORTAB (UNITED STATES) [Concomitant]
  13. WARFARIN [Concomitant]
     Active Substance: WARFARIN
  14. COUMADINE [Concomitant]
     Active Substance: WARFARIN SODIUM

REACTIONS (10)
  - Dysgeusia [Unknown]
  - Lethargy [Unknown]
  - Influenza like illness [Unknown]
  - Constipation [Unknown]
  - Diarrhoea [Unknown]
  - Disease progression [Unknown]
  - Vomiting [Unknown]
  - Decreased appetite [Unknown]
  - Nausea [Unknown]
  - Anaemia [Unknown]
